FAERS Safety Report 6046179-X (Version None)
Quarter: 2009Q1

REPORT INFORMATION
  Report Type: 
  Country: None (occurrence: None)
  Receive Date: 20090122
  Receipt Date: 20090119
  Transmission Date: 20090719
  Serious: Yes (Hospitalization)
  Sender: FDA-Public Use
  Company Number: US-JNJFOC-20090104881

PATIENT
  Sex: Male
  Weight: 113.4 kg

DRUGS (6)
  1. DURAGESIC-100 [Suspect]
     Indication: BACK PAIN
     Dosage: 100 UG/HR PLUS 100 UG/HR PLUS 50 UG/HR
     Route: 062
  2. FENTANYL TRANSDERMAL SYSTEM [Suspect]
     Indication: BACK PAIN
     Dosage: 100 UG/HR+100 UG/HR+ 50 UG/HR
     Route: 062
  3. REGLAN [Concomitant]
     Indication: GASTRIC DISORDER
     Route: 048
  4. DEPAKOTE [Concomitant]
     Indication: CONVULSION
     Dosage: 2 PER DAY ONE IN AM AND 500 MG IN PM
     Route: 048
  5. PRILOSEC [Concomitant]
     Indication: GASTRIC DISORDER
     Route: 048
  6. FLOVENT [Concomitant]
     Indication: ASTHMA
     Route: 055

REACTIONS (4)
  - BACK DISORDER [None]
  - DRUG INEFFECTIVE [None]
  - INCORRECT DRUG ADMINISTRATION DURATION [None]
  - WITHDRAWAL SYNDROME [None]
